FAERS Safety Report 8530129-8 (Version None)
Quarter: 2012Q3

REPORT INFORMATION
  Report Type: 
  Country: None (occurrence: None)
  Receive Date: 20120723
  Receipt Date: 20120718
  Transmission Date: 20120928
  Serious: No
  Sender: FDA-Public Use
  Company Number: PHHY2010AU093675

PATIENT
  Sex: Female

DRUGS (4)
  1. PREDNISONE [Concomitant]
     Dosage: 5 MG PER DAY
     Route: 048
     Dates: start: 20070605
  2. ZOLEDRONOC ACID [Suspect]
     Indication: OSTEOPOROTIC FRACTURE
     Dosage: 5 MG, UNK
     Route: 042
     Dates: start: 20091023
  3. LEVOTHYROXINE SODIUM [Concomitant]
     Dosage: 50 MG/DAY
     Route: 048
  4. METHOTREXATE [Concomitant]
     Indication: RHEUMATOID ARTHRITIS
     Dosage: 17.5 MG/WEEK
     Route: 048
     Dates: start: 20070605

REACTIONS (1)
  - CATARACT [None]
